FAERS Safety Report 12149313 (Version 2)
Quarter: 2018Q1

REPORT INFORMATION
  Report Type: Spontaneous
  Country: CA (occurrence: CA)
  Receive Date: 20160304
  Receipt Date: 20180330
  Transmission Date: 20180508
  Serious: Yes (Other)
  Sender: FDA-Public Use
  Company Number: CA-SA-2016SA036758

PATIENT
  Age: 61 Year
  Sex: Female

DRUGS (7)
  1. PREDNISONE. [Suspect]
     Active Substance: PREDNISONE
     Route: 065
     Dates: start: 2012
  2. AMLODIPINE [Suspect]
     Active Substance: AMLODIPINE BESYLATE
     Indication: HYPERTENSION
     Route: 065
  3. CALCIUM [Suspect]
     Active Substance: CALCIUM
     Route: 065
     Dates: start: 2012
  4. VITAMIN D3 [Suspect]
     Active Substance: CHOLECALCIFEROL
     Route: 065
     Dates: start: 2012
  5. AMLODIPINE [Suspect]
     Active Substance: AMLODIPINE BESYLATE
     Indication: HYPERTENSION
     Route: 048
     Dates: start: 2005
  6. IRBESARTAN. [Suspect]
     Active Substance: IRBESARTAN
     Route: 065
     Dates: start: 2013
  7. BUDESONIDE/FORMOTEROL FUMARATE [Suspect]
     Active Substance: BUDESONIDE\FORMOTEROL FUMARATE
     Route: 055
     Dates: start: 2012

REACTIONS (12)
  - Bronchopulmonary aspergillosis allergic [Unknown]
  - Blood immunoglobulin E increased [Unknown]
  - Asthma [Unknown]
  - Bronchiectasis [Unknown]
  - Eosinophilia [Unknown]
  - Cough [Unknown]
  - Wheezing [Unknown]
  - Pulmonary function test decreased [Unknown]
  - Rales [Unknown]
  - Aspergillus infection [Unknown]
  - Dyspnoea [Unknown]
  - Tachypnoea [Unknown]

NARRATIVE: CASE EVENT DATE: 2007
